FAERS Safety Report 6562122-9 (Version None)
Quarter: 2010Q1

REPORT INFORMATION
  Report Type: 
  Country: None (occurrence: None)
  Receive Date: 20100130
  Receipt Date: 20091102
  Transmission Date: 20100710
  Serious: Yes (Hospitalization)
  Sender: FDA-Public Use
  Company Number: US-ABBOTT-09P-163-0606329-00

PATIENT
  Sex: Male
  Weight: 64.014 kg

DRUGS (4)
  1. HUMIRA [Suspect]
     Indication: CROHN'S DISEASE
     Dates: start: 20090829, end: 20091001
  2. HUMIRA [Suspect]
     Dates: start: 20091001
  3. STEROIDS [Concomitant]
     Indication: DRUG USE FOR UNKNOWN INDICATION
  4. LEVITIRACETAM [Concomitant]
     Indication: MUSCLE SPASMS

REACTIONS (3)
  - ABDOMINAL PAIN [None]
  - CROHN'S DISEASE [None]
  - HERPES ZOSTER [None]
